FAERS Safety Report 8497690-3 (Version None)
Quarter: 2012Q3

REPORT INFORMATION
  Report Type: 
  Country: None (occurrence: None)
  Receive Date: 20120709
  Receipt Date: 20120614
  Transmission Date: 20120928
  Serious: Yes (Other)
  Sender: FDA-Public Use
  Company Number: US-AMGEN-USASP2011051426

PATIENT
  Age: 38 Year
  Sex: Female
  Weight: 44 kg

DRUGS (5)
  1. ENBREL [Suspect]
     Indication: PSORIATIC ARTHROPATHY
     Dosage: 50 MG, QWK
     Dates: start: 20090701
  2. ACYCLOVIR [Concomitant]
     Dosage: UNK
  3. SULFASALAZINE [Concomitant]
     Dosage: UNK
  4. PREDNISONE [Concomitant]
     Indication: PSORIATIC ARTHROPATHY
     Dosage: UNK
     Route: 048
     Dates: start: 20090101
  5. ZOVIRAX [Concomitant]
     Indication: ORAL HERPES
     Dosage: 400 MG, BID
     Route: 048
     Dates: start: 20110314

REACTIONS (2)
  - BASAL CELL CARCINOMA [None]
  - ORAL HERPES [None]
